FAERS Safety Report 19705471 (Version 1)
Quarter: 2021Q3

REPORT INFORMATION
  Report Type: Spontaneous
  Country: GB (occurrence: GB)
  Receive Date: 20210816
  Receipt Date: 20210816
  Transmission Date: 20211014
  Serious: Yes (Life-Threatening, Hospitalization, Other)
  Sender: FDA-Public Use
  Company Number: GB-GLAXOSMITHKLINE-GBCH2021054979

PATIENT
  Age: 17 Year
  Sex: Male
  Weight: 73 kg

DRUGS (8)
  1. IBUPROFEN. [Suspect]
     Active Substance: IBUPROFEN
     Indication: ILL-DEFINED DISORDER
     Dosage: 200MG/5ML
     Route: 048
     Dates: start: 20210812
  2. BRICANYL [Concomitant]
     Active Substance: TERBUTALINE SULFATE
     Indication: ILL-DEFINED DISORDER
     Dosage: INHALE 1 OR 2 DOSES BEFORE EXERCISE AS NEEDED
     Dates: start: 20190814
  3. SALBUTAMOL [Concomitant]
     Active Substance: ALBUTEROL
     Indication: ILL-DEFINED DISORDER
     Dosage: INHALE 2  ? 6 DOSES UP TO FOUR TIMES A DAY AS N...
     Dates: start: 20190814
  4. IPRATROPIUM BROMIDE. [Concomitant]
     Active Substance: IPRATROPIUM BROMIDE
     Indication: ILL-DEFINED DISORDER
     Dosage: 1?2 DOSES 3?4 TIMES A DAY WHEN REQUIRED
     Dates: start: 20190814
  5. CLENIL MODULITE [Concomitant]
     Active Substance: BECLOMETHASONE DIPROPIONATE
     Indication: ILL-DEFINED DISORDER
     Dosage: INHALE ONE DOSE TWICE A DAY VIA SPACER
     Dates: start: 20190814
  6. COSMOCOL [Concomitant]
     Indication: ILL-DEFINED DISORDER
     Dosage: 1?2 SACHETS DAILY TO PRODUCE SOFT STOOLS
     Dates: start: 20190814
  7. AZITHROMYCIN ANHYDROUS. [Concomitant]
     Active Substance: AZITHROMYCIN ANHYDROUS
     Indication: ILL-DEFINED DISORDER
     Dosage: 1 TO BE TAKEN THREE TIMES A WEEK
     Dates: start: 20190814
  8. LACTOBACILLUS REUTERI [Concomitant]
     Active Substance: LACTOBACILLUS REUTERI
     Indication: ILL-DEFINED DISORDER
     Dosage: TAKE 1 TABLET ONCE DAILY
     Dates: start: 20190814

REACTIONS (1)
  - Stevens-Johnson syndrome [Recovered/Resolved]

NARRATIVE: CASE EVENT DATE: 20210812
